FAERS Safety Report 6146501-X (Version None)
Quarter: 2009Q2

REPORT INFORMATION
  Report Type: 
  Country: None (occurrence: None)
  Receive Date: 20090407
  Receipt Date: 20090402
  Transmission Date: 20091009
  Serious: Yes (Other)
  Sender: FDA-Public Use
  Company Number: D0061137A

PATIENT
  Sex: Female

DRUGS (1)
  1. IMIGRAN [Suspect]
     Indication: MIGRAINE
     Route: 065

REACTIONS (2)
  - CHORIORETINOPATHY [None]
  - VISUAL IMPAIRMENT [None]
